FAERS Safety Report 4566435-1 (Version None)
Quarter: 2005Q1

REPORT INFORMATION
  Report Type: 
  Country: None (occurrence: None)
  Receive Date: 20050128
  Receipt Date: 20050111
  Transmission Date: 20050727
  Serious: Yes (Hospitalization)
  Sender: FDA-Public Use
  Company Number: 2004BI000979

PATIENT
  Age: 47 Year
  Sex: Female

DRUGS (11)
  1. AVONEX [Suspect]
     Indication: MULTIPLE SCLEROSIS
     Dosage: 30 UG; QW; IM
     Route: 030
     Dates: start: 20040901
  2. PAXIL [Concomitant]
  3. COLACE [Concomitant]
  4. PROVIGIL [Concomitant]
  5. GLUCOPHAGE [Concomitant]
  6. ATENOLOL [Concomitant]
  7. HYDROCHLOROTHIAZIDE [Concomitant]
  8. ACCUPRIL [Concomitant]
  9. LANTUS [Concomitant]
  10. WELLBUTRIN [Concomitant]
  11. ASPIRIN [Concomitant]

REACTIONS (10)
  - ANKLE FRACTURE [None]
  - APHTHOUS STOMATITIS [None]
  - ASTHMA [None]
  - FALL [None]
  - JOINT DISLOCATION [None]
  - JOINT LIGAMENT RUPTURE [None]
  - MUSCLE SPASMS [None]
  - PRODUCTIVE COUGH [None]
  - SPUTUM DISCOLOURED [None]
  - STRESS [None]
